FAERS Safety Report 13971901 (Version 1)
Quarter: 2017Q3

REPORT INFORMATION
  Report Type: Spontaneous
  Country: US (occurrence: US)
  Receive Date: 20170914
  Receipt Date: 20170914
  Transmission Date: 20171128
  Serious: Yes (Other)
  Sender: FDA-Public Use
  Company Number: None

PATIENT
  Sex: Female
  Weight: 60.75 kg

DRUGS (2)
  1. MAXIMUM STRENTH NASAL [Suspect]
     Active Substance: OXYMETAZOLINE HYDROCHLORIDE
     Indication: SINUS CONGESTION
     Dosage: QUANTITY:2 SPRAY(S);OTHER ROUTE:SPRAYED IN NOSTRIL?
     Dates: start: 20170914, end: 20170914
  2. DAYQUILL [Concomitant]

REACTIONS (2)
  - Product substitution issue [None]
  - Burning sensation [None]

NARRATIVE: CASE EVENT DATE: 20170914
